FAERS Safety Report 4700670-4 (Version None)
Quarter: 2005Q2

REPORT INFORMATION
  Report Type: 
  Country: None (occurrence: None)
  Receive Date: 20050627
  Receipt Date: 20050311
  Transmission Date: 20051028
  Serious: Yes (Hospitalization, Disabling)
  Sender: FDA-Public Use
  Company Number: US-MERCK-0503USA02610

PATIENT
  Age: 52 Year
  Sex: Female
  Weight: 75 kg

DRUGS (7)
  1. VIOXX [Suspect]
     Route: 048
     Dates: start: 20020228, end: 20030501
  2. FEMHRT [Concomitant]
     Route: 065
     Dates: start: 20020101, end: 20021201
  3. FEMHRT [Concomitant]
     Route: 065
     Dates: start: 20020101, end: 20021201
  4. ALEVE [Concomitant]
     Indication: OSTEOARTHRITIS
     Route: 065
     Dates: start: 20030101, end: 20050401
  5. ZOLOFT [Concomitant]
     Route: 065
     Dates: start: 20020301, end: 20020401
  6. VITAMINS (UNSPECIFIED) [Concomitant]
     Route: 065
  7. CALCIUM (UNSPECIFIED) [Concomitant]
     Route: 065

REACTIONS (5)
  - ANXIETY [None]
  - BLOOD CHOLESTEROL INCREASED [None]
  - CEREBROVASCULAR ACCIDENT [None]
  - DYSPNOEA [None]
  - GASTROOESOPHAGEAL REFLUX DISEASE [None]
